FAERS Safety Report 9928550 (Version 1)
Quarter: 2014Q1

REPORT INFORMATION
  Report Type: Spontaneous
  Country: FR (occurrence: FR)
  Receive Date: 20140227
  Receipt Date: 20140227
  Transmission Date: 20141002
  Serious: Yes (Hospitalization)
  Sender: FDA-Public Use
  Company Number: FR-SA-2014SA017231

PATIENT
  Age: 73 Year
  Sex: Male

DRUGS (11)
  1. AMIKACIN [Suspect]
     Indication: INFECTION
     Route: 042
  2. LOVENOX [Suspect]
     Indication: PRODUCT USED FOR UNKNOWN INDICATION
     Route: 058
  3. TIENAM [Suspect]
     Indication: INFECTION
     Route: 042
  4. VANCOMYCIN [Suspect]
     Indication: INFECTION
     Route: 042
  5. CIFLOX [Suspect]
     Indication: INFECTION
     Route: 042
  6. VFEND [Suspect]
     Indication: INFECTION
     Route: 042
  7. EFFEXOR [Concomitant]
     Route: 048
  8. INEXIUM [Concomitant]
     Route: 048
  9. DIFFU K [Concomitant]
     Route: 048
  10. GELOX [Concomitant]
     Route: 048
  11. TARGOCID [Concomitant]

REACTIONS (1)
  - Neutropenia [Recovered/Resolved]
